FAERS Safety Report 4667315-3 (Version None)
Quarter: 2005Q2

REPORT INFORMATION
  Report Type: 
  Country: None (occurrence: None)
  Receive Date: 20050520
  Receipt Date: 20040929
  Transmission Date: 20051028
  Serious: Yes (Other)
  Sender: FDA-Public Use
  Company Number: PHEH2004US10497

PATIENT
  Age: 58 Year
  Sex: Female

DRUGS (5)
  1. XELODA [Concomitant]
  2. AROMASIN [Concomitant]
  3. DARVOCET [Concomitant]
  4. PROZAC [Concomitant]
  5. ZOMETA [Suspect]
     Indication: METASTASES TO BONE
     Dosage: MONTHYLY
     Route: 042

REACTIONS (2)
  - OSTEONECROSIS [None]
  - TOOTH EXTRACTION [None]
